FAERS Safety Report 12845059 (Version 4)
Quarter: 2016Q4

REPORT INFORMATION
  Report Type: Spontaneous
  Country: AU (occurrence: AU)
  Receive Date: 20161013
  Receipt Date: 20161208
  Transmission Date: 20170207
  Serious: Yes (Hospitalization, Other)
  Sender: FDA-Public Use
  Company Number: AU-ABBVIE-16P-008-1751489-00

PATIENT
  Age: 41 Year
  Sex: Male
  Weight: 80 kg

DRUGS (3)
  1. VIEKIRA PAK [Suspect]
     Active Substance: DASABUVIR\OMBITASVIR\PARITAPREVIR\RITONAVIR
     Indication: CHRONIC HEPATITIS C
     Dosage: OMBITASVIR 12.5MG/PARITAPREVIR 75MG/DASABUVIR 250MG/RITONAVIR 50MG
     Route: 048
     Dates: start: 20151007, end: 20151230
  2. RIBAVIRIN. [Suspect]
     Active Substance: RIBAVIRIN
     Indication: CHRONIC HEPATITIS C
     Route: 048
     Dates: start: 20151007, end: 20151230
  3. BUDESONIDE. [Interacting]
     Active Substance: BUDESONIDE
     Indication: AUTOIMMUNE HEPATITIS
     Route: 048
     Dates: start: 20120503, end: 20120503

REACTIONS (18)
  - Muscle atrophy [Recovering/Resolving]
  - Muscular weakness [Recovering/Resolving]
  - Hypertension [Unknown]
  - Contusion [Unknown]
  - Fatigue [Unknown]
  - Weight decreased [Unknown]
  - Impaired healing [Unknown]
  - Mobility decreased [Unknown]
  - Drug interaction [Recovered/Resolved]
  - Irritability [Unknown]
  - Central obesity [Recovering/Resolving]
  - Cushing^s syndrome [Recovered/Resolved]
  - Disinhibition [Unknown]
  - Face oedema [Unknown]
  - Oedema peripheral [Unknown]
  - Night sweats [Unknown]
  - Pressure of speech [Unknown]
  - Myopathy [Unknown]

NARRATIVE: CASE EVENT DATE: 20151216
